FAERS Safety Report 5944565-7 (Version None)
Quarter: 2008Q4

REPORT INFORMATION
  Report Type: 
  Country: None (occurrence: None)
  Receive Date: 20081107
  Receipt Date: 20081031
  Transmission Date: 20090506
  Serious: Yes (Hospitalization)
  Sender: FDA-Public Use
  Company Number: US-ASTRAZENECA-2008UW21010

PATIENT
  Age: 82 Year
  Sex: Female

DRUGS (12)
  1. NEXIUM IV [Suspect]
     Route: 042
  2. NEXIUM [Suspect]
     Indication: GASTRIC DISORDER
     Route: 048
  3. VERAPAMIL [Concomitant]
  4. LISINOPRIL [Concomitant]
  5. METFORMIN HCL [Concomitant]
  6. GLIPIZIDE [Concomitant]
  7. LIPITOR [Concomitant]
  8. ASPIRIN [Concomitant]
  9. CALCIUM WITH VITAMIN D [Concomitant]
  10. MULTI-VITAMIN [Concomitant]
  11. ASCORBIC ACID [Concomitant]
  12. OMEPRAZOLE [Concomitant]
     Indication: ILL-DEFINED DISORDER

REACTIONS (11)
  - ANAEMIA [None]
  - ASTHENIA [None]
  - BEDRIDDEN [None]
  - COLITIS ISCHAEMIC [None]
  - DIVERTICULUM [None]
  - DIZZINESS [None]
  - GASTRIC ULCER [None]
  - GASTROINTESTINAL HAEMORRHAGE [None]
  - HAEMATOCHEZIA [None]
  - RECTAL HAEMORRHAGE [None]
  - VENTRICULAR TACHYCARDIA [None]
